FAERS Safety Report 11895355 (Version 1)
Quarter: 2016Q1

REPORT INFORMATION
  Report Type: Spontaneous
  Country: US (occurrence: US)
  Receive Date: 20160107
  Receipt Date: 20160107
  Transmission Date: 20160526
  Serious: No
  Sender: FDA-Public Use
  Company Number: US-TAKEDA-2016MPI000013

PATIENT
  Age: 75 Year
  Sex: Female
  Weight: 50.4 kg

DRUGS (10)
  1. ASPRIN [Concomitant]
     Active Substance: ASPIRIN
     Dosage: 81 MG, QD
     Route: 048
  2. PANOBINOSTAT [Suspect]
     Active Substance: PANOBINOSTAT
     Indication: PLASMA CELL MYELOMA
     Dosage: 20 MG, QOD
     Route: 048
     Dates: start: 20151012, end: 20151026
  3. DEXAMETHASONE. [Concomitant]
     Active Substance: DEXAMETHASONE
     Dosage: 4 MG, UNK
     Route: 048
     Dates: start: 20150104
  4. ATORVASTATIN [Concomitant]
     Active Substance: ATORVASTATIN
     Dosage: 40 MG, QD
     Route: 048
  5. COMPAZINE [Concomitant]
     Active Substance: PROCHLORPERAZINE MALEATE
     Dosage: 10 MG, UNK
     Route: 048
     Dates: start: 20150609
  6. VELCADE [Suspect]
     Active Substance: BORTEZOMIB
     Indication: PLASMA CELL MYELOMA
     Dosage: 1.3 MG/M2, UNK
     Route: 058
  7. ZOLEDRONIC ACID [Concomitant]
     Active Substance: ZOLEDRONIC ACID
     Dosage: 3.3 MG, Q4WEEKS
     Route: 042
  8. CALCIUM 500+D3 [Concomitant]
     Dosage: UNK, QD
     Route: 048
  9. PANOBINOSTAT [Suspect]
     Active Substance: PANOBINOSTAT
     Dosage: 15 MG, UNK
     Route: 048
     Dates: start: 20151109, end: 20151116
  10. VITAMIN D2 [Concomitant]
     Active Substance: ERGOCALCIFEROL
     Dosage: UNK, QD
     Route: 048

REACTIONS (3)
  - Fatigue [Recovering/Resolving]
  - Thrombocytopenia [Recovered/Resolved]
  - Thrombocytopenia [Recovering/Resolving]

NARRATIVE: CASE EVENT DATE: 20151025
